FAERS Safety Report 8170567-9 (Version None)
Quarter: 2012Q1

REPORT INFORMATION
  Report Type: 
  Country: None (occurrence: None)
  Receive Date: 20120228
  Receipt Date: 20120216
  Transmission Date: 20120608
  Serious: Yes (Other)
  Sender: FDA-Public Use
  Company Number: JP-SANOFI-AVENTIS-2011SA031290

PATIENT
  Age: 65 Year
  Sex: Male
  Weight: 44.4 kg

DRUGS (3)
  1. FLUVOXAMINE MALEATE [Suspect]
     Route: 048
     Dates: start: 20080513, end: 20080630
  2. RILUTEK [Suspect]
     Indication: AMYOTROPHIC LATERAL SCLEROSIS
     Route: 048
     Dates: start: 20081117, end: 20110919
  3. FLUVOXAMINE MALEATE [Suspect]
     Route: 048
     Dates: start: 20080701

REACTIONS (2)
  - HYPONATRAEMIA [None]
  - HYPOKALAEMIA [None]
